FAERS Safety Report 24810551 (Version 2)
Quarter: 2025Q1

REPORT INFORMATION
  Report Type: Spontaneous
  Country: IL (occurrence: IL)
  Receive Date: 20250106
  Receipt Date: 20250129
  Transmission Date: 20250409
  Serious: Yes (Hospitalization)
  Sender: AMERICAN REGENT
  Company Number: IL-AMERICAN REGENT INC-2024004908

PATIENT
  Age: 33 Year
  Sex: Female
  Weight: 67 kg

DRUGS (1)
  1. FERINJECT [Suspect]
     Active Substance: FERRIC CARBOXYMALTOSE
     Indication: Product used for unknown indication
     Dates: start: 20241219

REACTIONS (6)
  - Restlessness [Unknown]
  - Swelling face [Unknown]
  - Nausea [Unknown]
  - Rash [Unknown]
  - Pruritus [Unknown]
  - Maternal exposure during pregnancy [Unknown]

NARRATIVE: CASE EVENT DATE: 20241219
